FAERS Safety Report 22593923 (Version 2)
Quarter: 2023Q2

REPORT INFORMATION
  Report Type: Report from Study
  Country: CH (occurrence: CH)
  Receive Date: 20230613
  Receipt Date: 20230622
  Transmission Date: 20230721
  Serious: Yes (Hospitalization)
  Sender: FDA-Public Use
  Company Number: CH-BoehringerIngelheim-2023-BI-238159

PATIENT
  Age: 40 Year
  Sex: Male
  Weight: 72 kg

DRUGS (10)
  1. NINTEDANIB [Suspect]
     Active Substance: NINTEDANIB
     Indication: Bronchiolitis obliterans syndrome
     Route: 048
     Dates: start: 20230110, end: 20230427
  2. CANDESARTAN [Concomitant]
     Active Substance: CANDESARTAN
     Indication: Hypertension
     Route: 048
     Dates: start: 20230302
  3. SYMBICORT [Concomitant]
     Active Substance: BUDESONIDE\FORMOTEROL FUMARATE DIHYDRATE
     Indication: Bronchiolitis obliterans syndrome
     Dosage: 400/12 MCG
     Route: 055
     Dates: start: 20221115
  4. SPIRIVA [Concomitant]
     Active Substance: TIOTROPIUM BROMIDE MONOHYDRATE
     Indication: Bronchiolitis obliterans syndrome
     Dosage: 400/12 MCG
     Route: 055
     Dates: start: 20221115
  5. PANTOZOL [Concomitant]
     Active Substance: PANTOPRAZOLE SODIUM
     Indication: Prophylaxis
     Route: 048
     Dates: start: 20211001
  6. SULFAMETHOXAZOLE\TRIMETHOPRIM [Concomitant]
     Active Substance: SULFAMETHOXAZOLE\TRIMETHOPRIM
     Indication: Prophylaxis
     Dosage: 800/160 MG
     Route: 048
     Dates: start: 20221115
  7. Azithomycin [Concomitant]
     Indication: Prophylaxis
     Route: 048
     Dates: start: 20221007
  8. VALACYCLOVIR HYDROCHLORIDE [Concomitant]
     Active Substance: VALACYCLOVIR HYDROCHLORIDE
     Indication: Prophylaxis
     Route: 048
     Dates: start: 20221115
  9. TACROLIMUS [Concomitant]
     Active Substance: TACROLIMUS
     Indication: Bronchiolitis obliterans syndrome
     Route: 048
     Dates: start: 20230202
  10. Cellecept [Concomitant]
     Indication: Bronchiolitis obliterans syndrome
     Route: 048
     Dates: start: 20221007

REACTIONS (3)
  - Upper respiratory tract infection [Recovered/Resolved with Sequelae]
  - Oral candidiasis [Not Recovered/Not Resolved]
  - Thrombophlebitis [Unknown]

NARRATIVE: CASE EVENT DATE: 20230515
